FAERS Safety Report 4568260-4 (Version None)
Quarter: 2005Q1

REPORT INFORMATION
  Report Type: 
  Country: None (occurrence: None)
  Receive Date: 20050202
  Receipt Date: 20050131
  Transmission Date: 20050727
  Serious: Yes (Death)
  Sender: FDA-Public Use
  Company Number: PHBS2005JP01670

PATIENT
  Sex: Female

DRUGS (1)
  1. SANDOSTATIN [Suspect]
     Indication: GASTRIC OUTLET OBSTRUCTION
     Dosage: 300 UG/DAY
     Route: 058
     Dates: start: 20050126

REACTIONS (3)
  - APTYALISM [None]
  - DEATH [None]
  - THIRST [None]
